FAERS Safety Report 21848297 (Version 2)
Quarter: 2023Q1

REPORT INFORMATION
  Report Type: Spontaneous
  Country: CA (occurrence: CA)
  Receive Date: 20230111
  Receipt Date: 20230118
  Transmission Date: 20230417
  Serious: No
  Sender: FDA-Public Use
  Company Number: CA-PFIZER INC-PV202300001272

PATIENT
  Age: 73 Year
  Sex: Female

DRUGS (2)
  1. RUXIENCE [Suspect]
     Active Substance: RITUXIMAB-PVVR
     Indication: Cold type haemolytic anaemia
     Dosage: UNK
  2. RUXIENCE [Suspect]
     Active Substance: RITUXIMAB-PVVR
     Indication: Warm autoimmune haemolytic anaemia

REACTIONS (1)
  - Off label use [Unknown]
